FAERS Safety Report 12508999 (Version 2)
Quarter: 2016Q3

REPORT INFORMATION
  Report Type: Report from Study
  Country: US (occurrence: US)
  Receive Date: 20160629
  Receipt Date: 20160722
  Transmission Date: 20161109
  Serious: Yes (Other)
  Sender: FDA-Public Use
  Company Number: US-009507513-1606USA012973

PATIENT
  Sex: Male

DRUGS (2)
  1. JANUVIA [Suspect]
     Active Substance: SITAGLIPTIN PHOSPHATE
     Indication: DIABETES MELLITUS
     Dosage: UNK
     Route: 048
  2. KEYTRUDA [Suspect]
     Active Substance: PEMBROLIZUMAB
     Dosage: UNK

REACTIONS (8)
  - Malignant neoplasm progression [Unknown]
  - Dry mouth [Unknown]
  - Dehydration [Unknown]
  - Ear pain [Unknown]
  - Anaemia [Unknown]
  - Squamous cell carcinoma [Unknown]
  - Neutropenia [Unknown]
  - Nausea [Unknown]
